FAERS Safety Report 7156427-0 (Version None)
Quarter: 2010Q4

REPORT INFORMATION
  Report Type: 
  Country: None (occurrence: None)
  Receive Date: 20101214
  Receipt Date: 20101206
  Transmission Date: 20110411
  Serious: Yes (Other)
  Sender: FDA-Public Use
  Company Number: US-PERRIGO-10US015339

PATIENT
  Sex: Female

DRUGS (1)
  1. NAPROXEN SODIUM [Suspect]
     Indication: INTENTIONAL OVERDOSE
     Dosage: 7920 MG, SINGLE
     Route: 048
     Dates: start: 20101206, end: 20101206

REACTIONS (2)
  - FATIGUE [None]
  - INTENTIONAL OVERDOSE [None]
